FAERS Safety Report 9356674 (Version 1)
Quarter: 2013Q2

REPORT INFORMATION
  Report Type: Spontaneous
  Country: CA (occurrence: CA)
  Receive Date: 20130619
  Receipt Date: 20130619
  Transmission Date: 20140414
  Serious: Yes (Hospitalization, Other)
  Sender: FDA-Public Use
  Company Number: CA-BAXTER-2013BAX021965

PATIENT
  Age: 75 Year
  Sex: Female

DRUGS (3)
  1. DIANEAL PD4 SOLUTION WITH 1.5% DEXTROSE AND 2.5 MEQ/L CALCIUM [Suspect]
     Indication: PERITONEAL DIALYSIS
     Route: 033
  2. DIANEAL PD4 SOLUTION WITH 1.5% DEXTROSE AND 2.5 MEQ/L CALCIUM [Suspect]
     Route: 033
  3. METFORMIN [Concomitant]
     Indication: DIABETES MELLITUS
     Route: 065

REACTIONS (6)
  - Fall [Not Recovered/Not Resolved]
  - Spinal cord injury [Not Recovered/Not Resolved]
  - Spinal compression fracture [Not Recovered/Not Resolved]
  - Concussion [Not Recovered/Not Resolved]
  - Immobile [Not Recovered/Not Resolved]
  - Pain [Not Recovered/Not Resolved]
